FAERS Safety Report 16181625 (Version 1)
Quarter: 2019Q2

REPORT INFORMATION
  Report Type: Spontaneous
  Country: FR (occurrence: FR)
  Receive Date: 20190410
  Receipt Date: 20190410
  Transmission Date: 20190711
  Serious: Yes (Hospitalization)
  Sender: FDA-Public Use
  Company Number: FR-MYLANLABS-2019M1033049

PATIENT
  Age: 67 Year
  Sex: Male
  Weight: 56 kg

DRUGS (2)
  1. OXALIPLATIN. [Suspect]
     Active Substance: OXALIPLATIN
     Indication: NEOPLASM MALIGNANT
     Dosage: 175 MILLIGRAM
     Route: 042
     Dates: start: 20180613, end: 20180725
  2. RALTITREXED [Suspect]
     Active Substance: RALTITREXED
     Indication: NEOPLASM MALIGNANT
     Dosage: 5.25 MILLIGRAM
     Dates: start: 20180613, end: 20180725

REACTIONS (3)
  - Lung disorder [Recovered/Resolved]
  - Febrile bone marrow aplasia [Recovered/Resolved]
  - Enteritis [Recovered/Resolved]

NARRATIVE: CASE EVENT DATE: 20180713
